FAERS Safety Report 13235354 (Version 3)
Quarter: 2017Q2

REPORT INFORMATION
  Report Type: Spontaneous
  Country: CH (occurrence: DE)
  Receive Date: 20170215
  Receipt Date: 20170512
  Transmission Date: 20170830
  Serious: Yes (Other)
  Sender: FDA-Public Use
  Company Number: CH-LPDUSPRD-20170148

PATIENT
  Age: 44 Year
  Sex: Female
  Weight: 55 kg

DRUGS (1)
  1. FERINJECT [Suspect]
     Active Substance: FERRIC CARBOXYMALTOSE
     Dosage: 500MG IN 250NACL
     Route: 041
     Dates: start: 20130212, end: 20130212

REACTIONS (9)
  - Localised oedema [Unknown]
  - Hyperventilation [Unknown]
  - Pruritus [Unknown]
  - Contraindicated product administered [Unknown]
  - Swelling face [Unknown]
  - Erythema [Unknown]
  - Flushing [Unknown]
  - Urticaria [Unknown]
  - Angioedema [Unknown]

NARRATIVE: CASE EVENT DATE: 20130212
